FAERS Safety Report 5454003-9 (Version None)
Quarter: 2007Q3

REPORT INFORMATION
  Report Type: 
  Country: None (occurrence: None)
  Receive Date: 20070917
  Receipt Date: 20070906
  Transmission Date: 20080115
  Serious: Yes (Hospitalization)
  Sender: FDA-Public Use
  Company Number: FR-ROCHE-509280

PATIENT
  Age: 49 Year
  Sex: Male
  Weight: 54 kg

DRUGS (6)
  1. PEGASYS [Suspect]
     Indication: HEPATITIS C
     Dosage: FORM: INJECTABLE SOLUTION 180MCG/WEEK
     Route: 058
     Dates: start: 20070711, end: 20070727
  2. KALETRA [Concomitant]
     Route: 048
     Dates: start: 20070206
  3. LOXEN LP 50 [Concomitant]
     Route: 048
     Dates: start: 20070206
  4. IRBESARTAN [Concomitant]
     Route: 048
     Dates: start: 20070206
  5. ZOVIRAX [Concomitant]
     Indication: HERPES ZOSTER
     Route: 042
     Dates: start: 20070719, end: 20070726
  6. COPEGUS [Concomitant]
     Indication: HEPATITIS C
     Route: 048
     Dates: start: 20070720, end: 20070727

REACTIONS (1)
  - MOUTH ULCERATION [None]
